FAERS Safety Report 18780300 (Version 1)
Quarter: 2021Q1

REPORT INFORMATION
  Report Type: Spontaneous
  Country: US (occurrence: US)
  Receive Date: 20210122
  Receipt Date: 20210122
  Transmission Date: 20210419
  Serious: Yes (Hospitalization)
  Sender: FDA-Public Use
  Company Number: None

PATIENT
  Age: 56 Year
  Sex: Male

DRUGS (8)
  1. KEPPRA [Concomitant]
     Active Substance: LEVETIRACETAM
  2. TOPIRAMATE. [Concomitant]
     Active Substance: TOPIRAMATE
  3. TORSEMIDE. [Concomitant]
     Active Substance: TORSEMIDE
  4. LANTUS [Concomitant]
     Active Substance: INSULIN GLARGINE
  5. NOVOLOG [Concomitant]
     Active Substance: INSULIN ASPART
  6. XARELTO [Concomitant]
     Active Substance: RIVAROXABAN
  7. DOFETILIDE. [Suspect]
     Active Substance: DOFETILIDE
     Indication: ATRIAL FIBRILLATION
     Dosage: ?          OTHER FREQUENCY:EVERY 12 HRS;?
     Route: 048
     Dates: start: 20201204
  8. METOPROL TAR [Concomitant]

REACTIONS (5)
  - Atrial fibrillation [None]
  - Incorrect dose administered [None]
  - Atrial flutter [None]
  - Illness [None]
  - Product dispensing error [None]

NARRATIVE: CASE EVENT DATE: 20210120
